FAERS Safety Report 4690619-5 (Version None)
Quarter: 2005Q2

REPORT INFORMATION
  Report Type: 
  Country: None (occurrence: None)
  Receive Date: 20050615
  Receipt Date: 20050606
  Transmission Date: 20051028
  Serious: Yes (Other)
  Sender: FDA-Public Use
  Company Number: ES-BRISTOL-MYERS SQUIBB COMPANY-12995213

PATIENT
  Age: 74 Year
  Sex: Female

DRUGS (5)
  1. METHOTREXATE [Suspect]
     Indication: POLYARTHRITIS
     Route: 058
  2. FOLIC ACID [Concomitant]
     Indication: POLYARTHRITIS
  3. IBUPROFEN [Concomitant]
     Indication: POLYARTHRITIS
     Route: 048
  4. NAPROXEN [Concomitant]
     Indication: POLYARTHRITIS
     Route: 048
  5. OMEPRAZOLE [Concomitant]
     Indication: POLYARTHRITIS
     Route: 048

REACTIONS (1)
  - ERYTHEMA MULTIFORME [None]
